FAERS Safety Report 19782945 (Version 2)
Quarter: 2021Q3

REPORT INFORMATION
  Report Type: Report from Study
  Country: DE (occurrence: DE)
  Receive Date: 20210902
  Receipt Date: 20210916
  Transmission Date: 20211014
  Serious: Yes (Hospitalization, Other)
  Sender: FDA-Public Use
  Company Number: DE-GILEAD-2021-0545885

PATIENT
  Age: 66 Year
  Sex: Female
  Weight: 98 kg

DRUGS (6)
  1. SACITUZUMAB GOVITECAN. [Suspect]
     Active Substance: SACITUZUMAB GOVITECAN
     Dosage: 980 MG, D1 ? D8
     Route: 042
     Dates: start: 20210901
  2. BISOPROLOL [Concomitant]
     Active Substance: BISOPROLOL
     Dosage: 10 MG
     Dates: start: 20210826
  3. RAMIPRIL. [Concomitant]
     Active Substance: RAMIPRIL
     Dosage: 5 MG
  4. BISOPROLOL [Concomitant]
     Active Substance: BISOPROLOL
     Dosage: 2.5 MG
     Dates: start: 20050101, end: 20210825
  5. INDAPAMID [Concomitant]
     Active Substance: INDAPAMIDE
     Dosage: 2.5 MG
  6. SACITUZUMAB GOVITECAN. [Suspect]
     Active Substance: SACITUZUMAB GOVITECAN
     Indication: BREAST CANCER
     Dosage: 980 MG, D1 ? D8
     Route: 042
     Dates: start: 20210804, end: 20210819

REACTIONS (1)
  - Atrial fibrillation [Recovered/Resolved]

NARRATIVE: CASE EVENT DATE: 20210819
